FAERS Safety Report 21672534 (Version 1)
Quarter: 2022Q4

REPORT INFORMATION
  Report Type: Report from Study
  Country: GB (occurrence: GB)
  Receive Date: 20221202
  Receipt Date: 20221202
  Transmission Date: 20230113
  Serious: Yes (Death, Other)
  Sender: FDA-Public Use
  Company Number: GB-CELGENE-GBR-20180903760

PATIENT
  Age: 62 Year
  Sex: Female

DRUGS (6)
  1. LENALIDOMIDE [Suspect]
     Active Substance: LENALIDOMIDE
     Indication: Plasma cell myeloma
     Dosage: FREQUENCY TEXT: NOT PROVIDED (1-21 DAYS)
     Route: 048
     Dates: start: 20141202
  2. DEXAMETHASONE [Suspect]
     Active Substance: DEXAMETHASONE
     Indication: Plasma cell myeloma
     Dosage: DAY 1-4, 12-15
     Route: 048
     Dates: start: 20141202
  3. CYCLOPHOSPHAMIDE [Suspect]
     Active Substance: CYCLOPHOSPHAMIDE
     Indication: Plasma cell myeloma
     Dosage: FREQUENCY TEXT: AS PER PROTOCOL (DAY 1+8)
     Route: 048
     Dates: start: 20141202
  4. MEROPENEM [Concomitant]
     Active Substance: MEROPENEM
     Indication: Neutropenic sepsis
     Dosage: FREQUENCY TEXT: NOT PROVIDED
     Route: 042
  5. AMBISOME [Concomitant]
     Active Substance: AMPHOTERICIN B
     Indication: Neutropenic sepsis
     Dosage: FREQUENCY TEXT: NOT PROVIDED
     Route: 042
  6. TEICOPLANIN [Concomitant]
     Active Substance: TEICOPLANIN
     Indication: Neutropenic sepsis
     Dosage: FREQUENCY TEXT: NOT PROVIDED
     Route: 042

REACTIONS (2)
  - Transformation to acute myeloid leukaemia [Not Recovered/Not Resolved]
  - Pancytopenia [Fatal]

NARRATIVE: CASE EVENT DATE: 20171101
